FAERS Safety Report 4523676-7 (Version None)
Quarter: 2004Q4

REPORT INFORMATION
  Report Type: 
  Country: None (occurrence: None)
  Receive Date: 20041210
  Receipt Date: 20041203
  Transmission Date: 20050328
  Serious: Yes (Other)
  Sender: FDA-Public Use
  Company Number: US-GLAXOSMITHKLINE-A0536019A

PATIENT
  Sex: Male

DRUGS (7)
  1. COREG [Suspect]
     Route: 048
     Dates: start: 20030626
  2. LOVASTATIN [Suspect]
  3. CRESTOR [Suspect]
  4. ASPIRIN [Concomitant]
  5. LASIX [Concomitant]
  6. POTASSIUM CHLORIDE [Concomitant]
  7. ALTACE [Concomitant]

REACTIONS (8)
  - AGITATION [None]
  - AMNESIA [None]
  - CARDIAC ANEURYSM [None]
  - DISTURBANCE IN ATTENTION [None]
  - DIZZINESS [None]
  - INSOMNIA [None]
  - MYALGIA [None]
  - PALPITATIONS [None]
